FAERS Safety Report 8350292-1 (Version None)
Quarter: 2012Q2

REPORT INFORMATION
  Report Type: 
  Country: None (occurrence: None)
  Receive Date: 20120510
  Receipt Date: 20120502
  Transmission Date: 20120825
  Serious: Yes (Other)
  Sender: FDA-Public Use
  Company Number: JP-PFIZER INC-2012110061

PATIENT
  Sex: Female

DRUGS (2)
  1. COSOPT [Concomitant]
     Indication: GLAUCOMA
     Dosage: UNK
     Route: 047
  2. XALATAN [Suspect]
     Indication: GLAUCOMA
     Dosage: 1 GTT, 1X/DAY
     Route: 047

REACTIONS (2)
  - EYE DISORDER [None]
  - OCULAR HYPERAEMIA [None]
